FAERS Safety Report 10991782 (Version 1)
Quarter: 2015Q2

REPORT INFORMATION
  Report Type: Spontaneous
  Country: US (occurrence: US)
  Receive Date: 20150406
  Receipt Date: 20150406
  Transmission Date: 20150821
  Serious: Yes (Other)
  Sender: FDA-Public Use
  Company Number: US-PFIZER INC-2015113933

PATIENT
  Age: 55 Year
  Sex: Female
  Weight: 61.22 kg

DRUGS (2)
  1. LYRICA [Suspect]
     Active Substance: PREGABALIN
     Indication: NERVE INJURY
     Dosage: UNK
  2. LYRICA [Suspect]
     Active Substance: PREGABALIN
     Indication: HERPES ZOSTER
     Dosage: 75 MG, UNK

REACTIONS (9)
  - Shock [Unknown]
  - Brain neoplasm [Unknown]
  - Joint swelling [Unknown]
  - Concussion [Unknown]
  - Syncope [Unknown]
  - Rotator cuff syndrome [Unknown]
  - Memory impairment [Unknown]
  - Accident at work [Unknown]
  - Pain [Not Recovered/Not Resolved]
